FAERS Safety Report 6692682-9 (Version None)
Quarter: 2010Q2

REPORT INFORMATION
  Report Type: 
  Country: None (occurrence: None)
  Receive Date: 20100422
  Receipt Date: 20100420
  Transmission Date: 20101027
  Serious: Yes (Hospitalization)
  Sender: FDA-Public Use
  Company Number: US-BRISTOL-MYERS SQUIBB COMPANY-15042500

PATIENT
  Age: 62 Year
  Sex: Female

DRUGS (2)
  1. ORENCIA [Suspect]
     Indication: RHEUMATOID ARTHRITIS
     Dosage: LAST INF-19NOV2009
     Route: 042
     Dates: start: 20080408
  2. METHOTREXATE [Suspect]

REACTIONS (2)
  - PNEUMONIA [None]
  - RESPIRATORY FAILURE [None]
